FAERS Safety Report 6130063-7 (Version None)
Quarter: 2009Q1

REPORT INFORMATION
  Report Type: 
  Country: None (occurrence: None)
  Receive Date: 20090324
  Receipt Date: 20090313
  Transmission Date: 20090719
  Serious: Yes (Death, Life-Threatening, Hospitalization)
  Sender: FDA-Public Use
  Company Number: PE-AVENTIS-200912576GDDC

PATIENT
  Age: 72 Year
  Sex: Male
  Weight: 52 kg

DRUGS (7)
  1. DOCETAXEL [Suspect]
     Route: 042
     Dates: start: 20090228, end: 20090228
  2. CISPLATIN [Suspect]
     Route: 042
     Dates: start: 20090228, end: 20090228
  3. FLUOROURACIL [Suspect]
     Route: 042
     Dates: start: 20090228, end: 20090305
  4. CODE UNBROKEN [Concomitant]
     Indication: THROMBOSIS PROPHYLAXIS
     Dates: start: 20090228, end: 20090228
  5. ENALAPRIL MALEATE [Concomitant]
     Dates: start: 20021115
  6. ATENOLOL [Concomitant]
     Dates: start: 20021115
  7. TRIOSAL [Concomitant]

REACTIONS (4)
  - DEHYDRATION [None]
  - NAUSEA [None]
  - SEPTIC SHOCK [None]
  - VOMITING [None]
